FAERS Safety Report 13668487 (Version 2)
Quarter: 2017Q2

REPORT INFORMATION
  Report Type: Spontaneous
  Country: IT (occurrence: IT)
  Receive Date: 20170620
  Receipt Date: 20170624
  Transmission Date: 20170830
  Serious: Yes (Hospitalization, Other)
  Sender: FDA-Public Use
  Company Number: IT-ACCORD-052759

PATIENT
  Age: 58 Year
  Sex: Male

DRUGS (2)
  1. MYCOPHENOLIC ACID. [Suspect]
     Active Substance: MYCOPHENOLIC ACID
     Indication: IMMUNOSUPPRESSION
     Dates: start: 2004, end: 2013
  2. CICLOSPORIN [Suspect]
     Active Substance: CYCLOSPORINE
     Indication: IMMUNOSUPPRESSION
     Dates: start: 2004, end: 2013

REACTIONS (6)
  - Acute kidney injury [Recovered/Resolved]
  - Impaired healing [Recovered/Resolved]
  - Cystitis [Unknown]
  - Acinetobacter infection [Recovered/Resolved]
  - Postoperative wound infection [Recovered/Resolved]
  - Wound dehiscence [Recovered/Resolved]
